FAERS Safety Report 21534522 (Version 1)
Quarter: 2022Q4

REPORT INFORMATION
  Report Type: Spontaneous
  Country: US (occurrence: US)
  Receive Date: 20221101
  Receipt Date: 20221101
  Transmission Date: 20230113
  Serious: Yes (Other)
  Sender: FDA-Public Use
  Company Number: US-SA-SAC20221031000107

PATIENT
  Age: 30 Year
  Sex: Female

DRUGS (1)
  1. ZANTAC [Suspect]
     Active Substance: RANITIDINE HYDROCHLORIDE
     Dosage: 75 MG FREQUENCY: OTHER
     Route: 065
     Dates: start: 201001, end: 201801

REACTIONS (2)
  - Bladder cancer stage II [Not Recovered/Not Resolved]
  - Pancreatic carcinoma stage II [Not Recovered/Not Resolved]

NARRATIVE: CASE EVENT DATE: 20180601
